FAERS Safety Report 9947669 (Version 1)
Quarter: 2014Q1

REPORT INFORMATION
  Report Type: Report from Study
  Country: US (occurrence: US)
  Receive Date: 20140303
  Receipt Date: 20140303
  Transmission Date: 20141002
  Serious: No
  Sender: FDA-Public Use
  Company Number: US-ABBVIE-13P-163-1062243-00

PATIENT
  Age: 37 Year
  Sex: Male

DRUGS (5)
  1. HUMIRA [Suspect]
     Indication: CROHN^S DISEASE
     Dates: start: 20130215, end: 20130215
  2. HUMIRA [Suspect]
     Dates: start: 20130225
  3. METPOPROLOL [Concomitant]
     Indication: BLOOD PRESSURE
     Dosage: 50 MG DAILY
  4. LIALDA [Concomitant]
     Indication: CROHN^S DISEASE
     Dosage: 1.2 GM X 4 TABS DAILY
  5. VISINE [Concomitant]
     Indication: PRODUCT USED FOR UNKNOWN INDICATION
     Dosage: COUPLE OF TIMES

REACTIONS (4)
  - Dry eye [Not Recovered/Not Resolved]
  - Arthralgia [Not Recovered/Not Resolved]
  - Joint swelling [Not Recovered/Not Resolved]
  - Eye irritation [Not Recovered/Not Resolved]
